FAERS Safety Report 23197123 (Version 1)
Quarter: 2023Q4

REPORT INFORMATION
  Report Type: Spontaneous
  Country: DE (occurrence: None)
  Receive Date: 20231117
  Receipt Date: 20231117
  Transmission Date: 20240110
  Serious: Yes (Hospitalization, Other)
  Sender: FDA-Public Use
  Company Number: 2023A210299

PATIENT
  Age: 55 Year
  Sex: Male

DRUGS (2)
  1. IMJUDO [Suspect]
     Active Substance: TREMELIMUMAB\TREMELIMUMAB-ACTL
     Indication: Product used for unknown indication
     Route: 042
  2. IMFINZI [Suspect]
     Active Substance: DURVALUMAB
     Indication: Product used for unknown indication

REACTIONS (3)
  - Stevens-Johnson syndrome [Recovered/Resolved]
  - Acute kidney injury [Unknown]
  - Thrombosis [Unknown]
